FAERS Safety Report 18162626 (Version 6)
Quarter: 2022Q2

REPORT INFORMATION
  Report Type: Spontaneous
  Country: US (occurrence: US)
  Receive Date: 20200818
  Receipt Date: 20220518
  Transmission Date: 20220720
  Serious: No
  Sender: FDA-Public Use
  Company Number: US-PFIZER INC-2020318070

PATIENT
  Age: 49 Year
  Sex: Female

DRUGS (8)
  1. IBRANCE [Suspect]
     Active Substance: PALBOCICLIB
     Dosage: 100 MG, CYCLIC (2 WEEKS ON AND 2 WEEKS OFF)
     Dates: start: 20200801
  2. IBRANCE [Suspect]
     Active Substance: PALBOCICLIB
     Dosage: 125 MG
     Dates: start: 20200810, end: 202008
  3. IBRANCE [Suspect]
     Active Substance: PALBOCICLIB
     Dosage: 100 MG, CYCLIC(O 2 WEEKS ON MEDICATION AND THEN 2 WEEKS OFF)
     Dates: start: 20200810
  4. IBRANCE [Suspect]
     Active Substance: PALBOCICLIB
     Dosage: 125 MG
     Dates: start: 20200812, end: 202008
  5. IBRANCE [Suspect]
     Active Substance: PALBOCICLIB
     Dosage: 125 MG
     Dates: start: 20200817, end: 202008
  6. IBRANCE [Suspect]
     Active Substance: PALBOCICLIB
     Dosage: 125 MG
     Dates: start: 20200820
  7. IBRANCE [Suspect]
     Active Substance: PALBOCICLIB
     Dosage: 75 MG
  8. OXYCODONE [Concomitant]
     Active Substance: OXYCODONE
     Indication: Pain
     Dosage: UNK

REACTIONS (9)
  - Abdominal discomfort [Unknown]
  - Neutrophil count increased [Unknown]
  - Arthralgia [Unknown]
  - Decreased appetite [Unknown]
  - Constipation [Unknown]
  - White blood cell count decreased [Unknown]
  - Fatigue [Unknown]
  - Asthenia [Unknown]
  - Neutrophil count decreased [Recovering/Resolving]

NARRATIVE: CASE EVENT DATE: 20200101
